FAERS Safety Report 10284805 (Version 2)
Quarter: 2014Q3

REPORT INFORMATION
  Report Type: Report from Study
  Country: CA (occurrence: CA)
  Receive Date: 20140708
  Receipt Date: 20140715
  Transmission Date: 20150326
  Serious: Yes (Hospitalization)
  Sender: FDA-Public Use
  Company Number: CA-BRISTOL-MYERS SQUIBB COMPANY-21166061

PATIENT
  Age: 66 Year
  Sex: Female

DRUGS (14)
  1. OXAZEPAM. [Concomitant]
     Active Substance: OXAZEPAM
  2. ADVAIR HFA [Concomitant]
     Active Substance: FLUTICASONE PROPIONATE\SALMETEROL XINAFOATE
  3. BISOPROLOL [Concomitant]
     Active Substance: BISOPROLOL
  4. ASAPHEN [Concomitant]
     Active Substance: ASPIRIN
  5. ESOMEPRAZOLE [Concomitant]
     Active Substance: ESOMEPRAZOLE
  6. CALCIUM [Concomitant]
     Active Substance: CALCIUM
  7. ORENCIA [Suspect]
     Active Substance: ABATACEPT
     Indication: RHEUMATOID ARTHRITIS
     Route: 058
     Dates: start: 20140602
  8. SPIRIVA [Concomitant]
     Active Substance: TIOTROPIUM BROMIDE MONOHYDRATE
  9. PREDNISONE. [Concomitant]
     Active Substance: PREDNISONE
  10. ACTONEL [Concomitant]
     Active Substance: RISEDRONATE SODIUM
  11. VITAMIN D [Concomitant]
     Active Substance: CHOLECALCIFEROL
  12. NASONEX [Concomitant]
     Active Substance: MOMETASONE FUROATE
  13. ATASOL [Concomitant]
     Active Substance: ACETAMINOPHEN
  14. COLISTIMETHATE SODIUM. [Concomitant]
     Active Substance: COLISTIMETHATE SODIUM

REACTIONS (2)
  - Fall [Unknown]
  - Upper limb fracture [Unknown]

NARRATIVE: CASE EVENT DATE: 20140625
